FAERS Safety Report 4441105-9 (Version None)
Quarter: 2004Q3

REPORT INFORMATION
  Report Type: 
  Country: None (occurrence: None)
  Receive Date: 20040902
  Receipt Date: 20040902
  Transmission Date: 20050211
  Serious: Yes (Hospitalization)
  Sender: FDA-Public Use
  Company Number: None

PATIENT
  Sex: Male
  Weight: 72.5755 kg

DRUGS (2)
  1. CELECOXIB 200 MG , SEARLE , PFIZER [Suspect]
     Indication: PANCREATIC CARCINOMA METASTATIC
     Dosage: 400 MG BID PO
     Route: 048
     Dates: start: 20040824, end: 20040825
  2. GEMCITABINE [Concomitant]

REACTIONS (5)
  - ABDOMINAL PAIN [None]
  - CONSTIPATION [None]
  - LARGE INTESTINE PERFORATION [None]
  - NAUSEA [None]
  - VOMITING [None]
